FAERS Safety Report 21185489 (Version 2)
Quarter: 2022Q3

REPORT INFORMATION
  Report Type: Spontaneous
  Country: US (occurrence: US)
  Receive Date: 20220808
  Receipt Date: 20220902
  Transmission Date: 20221026
  Serious: No
  Sender: FDA-Public Use
  Company Number: US-ViiV Healthcare Limited-83087

PATIENT
  Age: 24 Year
  Sex: Male

DRUGS (2)
  1. RILPIVIRINE [Suspect]
     Active Substance: RILPIVIRINE
     Indication: Product used for unknown indication
     Dosage: UNK CAB 600-MG/RPV 900-MG 2X3ML
     Route: 065
  2. CABOTEGRAVIR [Suspect]
     Active Substance: CABOTEGRAVIR
     Indication: Product used for unknown indication
     Dosage: UNK CAB 600-MG/RPV 900-MG 2X3ML
     Route: 065

REACTIONS (3)
  - Underdose [Unknown]
  - Product leakage [Unknown]
  - Product complaint [Unknown]

NARRATIVE: CASE EVENT DATE: 20220728
